FAERS Safety Report 4960932-2 (Version None)
Quarter: 2006Q1

REPORT INFORMATION
  Report Type: 
  Country: None (occurrence: None)
  Receive Date: 20060328
  Receipt Date: 20060313
  Transmission Date: 20060701
  Serious: Yes (Life-Threatening, Hospitalization, Other)
  Sender: FDA-Public Use
  Company Number: 2006034468

PATIENT
  Age: 54 Year
  Sex: Male

DRUGS (16)
  1. SILDENAFIL CITRATE [Suspect]
     Indication: PULMONARY HYPERTENSION
     Dosage: 240 MG (80 MG, 3 IN 1 D), ORAL
     Route: 048
     Dates: start: 20030903
  2. FLOLAN [Concomitant]
  3. TRACLEER [Concomitant]
  4. LESCOL [Concomitant]
  5. CALCIUM CARBONATE [Concomitant]
  6. MAGNESIUM CARBONATE [Concomitant]
  7. SODIUM HYDROGEN CARBONATE (SODIUM BICARBONATE) [Concomitant]
  8. ALL OTHER THERAPEUTIC PRODUCTS [Concomitant]
  9. EPOETIN BETA [Concomitant]
  10. MYOLASTAN (TETRAZEPAM) [Concomitant]
  11. MULTIVITAMINS, COMBINATIONS [Concomitant]
  12. ENGERIX-B [Concomitant]
  13. LOPERAMIDE [Concomitant]
  14. ALL OTHER THERAPEUTIC PRODUCTS [Concomitant]
  15. LITICAN (ALIZAPRIDE) [Concomitant]
  16. HYOSCINE HBR HYT [Concomitant]

REACTIONS (23)
  - BRADYCARDIA [None]
  - DEHYDRATION [None]
  - DIARRHOEA [None]
  - ELECTROLYTE IMBALANCE [None]
  - EPILEPSY [None]
  - FATIGUE [None]
  - FLAIL CHEST [None]
  - GENERAL PHYSICAL HEALTH DETERIORATION [None]
  - GRAND MAL CONVULSION [None]
  - HYPOTENSION [None]
  - IATROGENIC INJURY [None]
  - NEPHROTIC SYNDROME [None]
  - NOSOCOMIAL INFECTION [None]
  - PNEUMONIA [None]
  - PNEUMOTHORAX [None]
  - POOR QUALITY SLEEP [None]
  - PROCEDURAL COMPLICATION [None]
  - PROCEDURAL PAIN [None]
  - PULMONARY HYPERTENSION [None]
  - PULMONARY OEDEMA [None]
  - PULMONARY VENO-OCCLUSIVE DISEASE [None]
  - RENAL FAILURE CHRONIC [None]
  - VOMITING [None]
